FAERS Safety Report 7169396 (Version 2)
Quarter: 2013Q3

REPORT INFORMATION
  Report Type: Spontaneous
  Country: IT (occurrence: None)
  Receive Date: 20091021
  Receipt Date: 20130709
  Transmission Date: 20140515
  Serious: Yes (Hospitalization, Other)
  Sender: FDA-Public Use
  Company Number: AUR-APL-2009-00838

PATIENT
  Age: 80 Year
  Sex: Female

DRUGS (2)
  1. METOPROLOL [Suspect]
     Indication: SINUS TACHYCARDIA
     Dosage: 3MG, ONE DOSE
  2. DOBUTAMINE HYDROCHLORIDE [Suspect]
     Indication: STRESS ECHOCARDIOGRAM
     Dosage: 5 UG/KG/MINUTE AND INCREASED STEPWISE TO 40UG/KG/MINUTE EVERY 3 MINUTES

REACTIONS (6)
  - Myocardial ischaemia [None]
  - Electrocardiogram ST segment elevation [None]
  - Sinus tachycardia [None]
  - Electrocardiogram ST segment depression [None]
  - Chest pain [None]
  - Arteriospasm coronary [None]
